FAERS Safety Report 8250697-3 (Version None)
Quarter: 2012Q2

REPORT INFORMATION
  Report Type: 
  Country: None (occurrence: None)
  Receive Date: 20120402
  Receipt Date: 20120329
  Transmission Date: 20120825
  Serious: Yes (Other)
  Sender: FDA-Public Use
  Company Number: BE-PFIZER INC-2012048494

PATIENT
  Sex: Male

DRUGS (1)
  1. NICORETTE [Suspect]
     Dosage: 10 MG, UNK
     Route: 055
     Dates: start: 20100301

REACTIONS (4)
  - WRONG TECHNIQUE IN DRUG USAGE PROCESS [None]
  - INTENTIONAL DRUG MISUSE [None]
  - DRUG DEPENDENCE [None]
  - MALAISE [None]
